FAERS Safety Report 5717956-7 (Version None)
Quarter: 2008Q2

REPORT INFORMATION
  Report Type: 
  Country: None (occurrence: None)
  Receive Date: 20080425
  Receipt Date: 20080418
  Transmission Date: 20081010
  Serious: Yes (Other)
  Sender: FDA-Public Use
  Company Number: A0709724A

PATIENT
  Age: 53 Year
  Sex: Female
  Weight: 71.4 kg

DRUGS (2)
  1. IMITREX [Suspect]
     Indication: MIGRAINE
     Dosage: 100MG PER DAY
     Route: 048
     Dates: start: 19990101, end: 20080101
  2. TOPAMAX [Concomitant]
     Indication: MIGRAINE
     Dosage: 50MG TWICE PER DAY
     Route: 048
     Dates: start: 20070101

REACTIONS (3)
  - ERYTHEMA MULTIFORME [None]
  - RASH [None]
  - STREPTOCOCCAL INFECTION [None]
